FAERS Safety Report 16950740 (Version 1)
Quarter: 2019Q4

REPORT INFORMATION
  Report Type: Spontaneous
  Country: GB (occurrence: GB)
  Receive Date: 20191023
  Receipt Date: 20191023
  Transmission Date: 20200122
  Serious: Yes (Other)
  Sender: FDA-Public Use
  Company Number: GB-PFIZER INC-2019442833

PATIENT
  Age: 53 Year
  Sex: Female

DRUGS (3)
  1. CYTARABINE. [Suspect]
     Active Substance: CYTARABINE
     Dosage: 25 ML (AS PART OF FIRST 4 CHEMOTHERAPY TREATMENTS), UNK
  2. INTERFERON [Suspect]
     Active Substance: INTERFERON
     Indication: STEM CELL TRANSPLANT
     Dosage: UNK
  3. CYTARABINE. [Suspect]
     Active Substance: CYTARABINE
     Dosage: 150 ML (WITH INTERFERON), UNK

REACTIONS (17)
  - Vomiting [Unknown]
  - Anal incontinence [Unknown]
  - Pneumonia [Unknown]
  - Diarrhoea [Unknown]
  - Somnolence [Unknown]
  - Malaise [Unknown]
  - Chromaturia [Unknown]
  - Hallucination, visual [Unknown]
  - Memory impairment [Unknown]
  - Neoplasm progression [Unknown]
  - Sepsis [Unknown]
  - Eating disorder [Unknown]
  - Alopecia [Unknown]
  - Nausea [Unknown]
  - Graft versus host disease [Unknown]
  - Mobility decreased [Unknown]
  - Weight decreased [Unknown]
